FAERS Safety Report 11308144 (Version 1)
Quarter: 2015Q3

REPORT INFORMATION
  Report Type: Report from Study
  Country: CA (occurrence: CA)
  Receive Date: 20150724
  Receipt Date: 20150724
  Transmission Date: 20151125
  Serious: Yes (Other)
  Sender: FDA-Public Use
  Company Number: CA-ROCHE-1611604

PATIENT

DRUGS (3)
  1. RIBAVIRIN. [Suspect]
     Active Substance: RIBAVIRIN
     Indication: HEPATITIS C
     Route: 065
  2. SIMEPREVIR [Suspect]
     Active Substance: SIMEPREVIR
     Indication: HEPATITIS C
     Route: 065
  3. SOFOSBUVIR [Suspect]
     Active Substance: SOFOSBUVIR
     Indication: HEPATITIS C
     Route: 065

REACTIONS (8)
  - Small intestinal perforation [Unknown]
  - Ascites [Unknown]
  - Renal failure [Unknown]
  - Bleeding varicose vein [Unknown]
  - Anaemia [Unknown]
  - Jaundice [Unknown]
  - Bilirubin conjugated increased [Unknown]
  - Platelet count increased [Unknown]
